FAERS Safety Report 8966324 (Version 1)
Quarter: 2012Q4

REPORT INFORMATION
  Report Type: 
  Country: US (occurrence: US)
  Receive Date: 20121214
  Receipt Date: 20121214
  Transmission Date: 20130627
  Serious: Yes (Hospitalization)
  Sender: FDA-Public Use
  Company Number: US-GLAXOSMITHKLINE-A0776277A

PATIENT
  Age: 48 Year
  Sex: Male

DRUGS (3)
  1. AVANDIA [Suspect]
     Indication: DIABETES MELLITUS
     Route: 048
     Dates: start: 200101, end: 200510
  2. GLUCOPHAGE [Concomitant]
  3. MICRONASE [Concomitant]

REACTIONS (1)
  - Myocardial infarction [Not Recovered/Not Resolved]
